FAERS Safety Report 7509153-X (Version None)
Quarter: 2011Q2

REPORT INFORMATION
  Report Type: 
  Country: None (occurrence: None)
  Receive Date: 20110527
  Receipt Date: 20090809
  Transmission Date: 20111010
  Serious: Yes (Death, Other)
  Sender: FDA-Public Use
  Company Number: US-BAYER-200929365NA

PATIENT
  Age: 85 Year
  Sex: Male
  Weight: 66 kg

DRUGS (11)
  1. LANOXIN [Concomitant]
     Dosage: 0.125MG THREE TIMES PER WEEK
     Route: 048
  2. LASIX [Concomitant]
     Dosage: 40 MG, QD
     Route: 048
  3. INSULIN [Concomitant]
     Route: 042
  4. PROTAMINE SULFATE [Concomitant]
     Route: 042
  5. FENTANYL [Concomitant]
     Route: 042
  6. RED BLOOD CELLS [Concomitant]
     Dosage: UNK
     Dates: start: 20050707
  7. NORVASC [Concomitant]
     Dosage: 5 MG, QD
     Route: 048
  8. ASPIRIN [Concomitant]
     Dosage: 325 MG, QD
     Route: 048
  9. HEPARIN [Concomitant]
     Route: 042
  10. TRASYLOL [Suspect]
     Indication: AORTIC VALVE REPLACEMENT
     Dosage: UNK
     Route: 042
     Dates: start: 20050707, end: 20050707
  11. TRASYLOL [Suspect]
     Indication: AORTIC ANEURYSM REPAIR

REACTIONS (14)
  - RENAL IMPAIRMENT [None]
  - EMOTIONAL DISTRESS [None]
  - ANXIETY [None]
  - INJURY [None]
  - MULTI-ORGAN FAILURE [None]
  - RENAL FAILURE [None]
  - PAIN [None]
  - CEREBROVASCULAR ACCIDENT [None]
  - STRESS [None]
  - FEAR [None]
  - ANHEDONIA [None]
  - DEATH [None]
  - RENAL INJURY [None]
  - UNEVALUABLE EVENT [None]
